FAERS Safety Report 10241124 (Version 1)
Quarter: 2014Q2

REPORT INFORMATION
  Report Type: Spontaneous
  Country: US (occurrence: US)
  Receive Date: 20140617
  Receipt Date: 20140617
  Transmission Date: 20141212
  Serious: No
  Sender: FDA-Public Use
  Company Number: US-009507513-1404USA011797

PATIENT
  Sex: Male

DRUGS (1)
  1. DR. SCHOLL^S SOOTHING FOOT POWDER [Suspect]
     Indication: PRODUCT USED FOR UNKNOWN INDICATION
     Dosage: UNK UNK, UNKNOWN
     Route: 061
     Dates: start: 20140403

REACTIONS (2)
  - Application site discomfort [Not Recovered/Not Resolved]
  - Application site papules [Not Recovered/Not Resolved]
